FAERS Safety Report 25330100 (Version 1)
Quarter: 2025Q2

REPORT INFORMATION
  Report Type: Report from Study
  Country: US (occurrence: US)
  Receive Date: 20250519
  Receipt Date: 20250519
  Transmission Date: 20250716
  Serious: Yes (Other)
  Sender: ABBVIE
  Company Number: US-ABBVIE-6139703

PATIENT
  Sex: Male

DRUGS (1)
  1. SKYRIZI [Suspect]
     Active Substance: RISANKIZUMAB-RZAA
     Indication: Psoriatic arthropathy
     Route: 058
     Dates: start: 20240402

REACTIONS (8)
  - Multiple sclerosis [Recovered/Resolved]
  - Arthritis [Not Recovered/Not Resolved]
  - Pain in extremity [Not Recovered/Not Resolved]
  - Bursitis [Unknown]
  - Peripheral swelling [Not Recovered/Not Resolved]
  - Swelling [Recovered/Resolved]
  - Pain [Recovered/Resolved]
  - Muscular weakness [Recovered/Resolved]
